FAERS Safety Report 24293772 (Version 1)
Quarter: 2024Q3

REPORT INFORMATION
  Report Type: Spontaneous
  Country: US (occurrence: None)
  Receive Date: 20240906
  Receipt Date: 20240906
  Transmission Date: 20241016
  Serious: No
  Sender: DOMPE FARMACEUTICI
  Company Number: US-FARMAPROD-202308-202402-0662

PATIENT
  Age: 67 Year
  Sex: Female

DRUGS (13)
  1. OXERVATE [Suspect]
     Active Substance: CENEGERMIN-BKBJ
     Indication: Neurotrophic keratopathy
     Route: 047
     Dates: start: 20240206
  2. CAPSAICIN [Concomitant]
     Active Substance: CAPSAICIN
  3. CLONAZEPAM [Concomitant]
     Active Substance: CLONAZEPAM
  4. MELOXICAM [Concomitant]
     Active Substance: MELOXICAM
  5. PROBIOTICS NOS [Concomitant]
     Active Substance: PROBIOTICS NOS
     Dosage: 10 BILLION OF CELLS
  6. VITAMINS [Concomitant]
     Active Substance: VITAMINS
  7. MELATONIN [Concomitant]
     Active Substance: MELATONIN
  8. VEVYE [Concomitant]
     Active Substance: CYCLOSPORINE
  9. MIEBO [Concomitant]
     Active Substance: PERFLUOROHEXYLOCTANE
  10. CLEAR EYES NATURAL TEARS [Concomitant]
     Active Substance: POLYVINYL ALCOHOL\POVIDONE
  11. RESTASIS [Concomitant]
     Active Substance: CYCLOSPORINE
     Dosage: DROPERETTE
  12. ONDANSETRON HYDROCHLORIDE [Concomitant]
     Active Substance: ONDANSETRON HYDROCHLORIDE
  13. HYDROCHLOROTHIAZIDE\LOSARTAN [Concomitant]
     Active Substance: HYDROCHLOROTHIAZIDE\LOSARTAN

REACTIONS (1)
  - Dry eye [Unknown]

NARRATIVE: CASE EVENT DATE: 20240201
